FAERS Safety Report 24704189 (Version 2)
Quarter: 2025Q1

REPORT INFORMATION
  Report Type: Report from Study
  Country: DE (occurrence: DE)
  Receive Date: 20241206
  Receipt Date: 20250107
  Transmission Date: 20250409
  Serious: Yes (Death)
  Sender: CSL BEHRING
  Company Number: DE-BEH-2024186902

PATIENT

DRUGS (1)
  1. HUMAN IMMUNOGLOBULIN G [Suspect]
     Active Substance: HUMAN IMMUNOGLOBULIN G
     Indication: Pyoderma gangrenosum
     Route: 042

REACTIONS (2)
  - Myocardial infarction [Fatal]
  - Off label use [Unknown]
